FAERS Safety Report 8302173-7 (Version None)
Quarter: 2012Q2

REPORT INFORMATION
  Report Type: 
  Country: None (occurrence: None)
  Receive Date: 20120418
  Receipt Date: 20120412
  Transmission Date: 20120825
  Serious: Yes (Other)
  Sender: FDA-Public Use
  Company Number: 2011SP043505

PATIENT
  Sex: Male

DRUGS (3)
  1. SAPHRIS [Suspect]
     Indication: SCHIZOAFFECTIVE DISORDER
     Dosage: 5 MG;SL 10 MG 15 MG
     Route: 060
     Dates: start: 20110812, end: 20110825
  2. SAPHRIS [Suspect]
     Indication: SCHIZOAFFECTIVE DISORDER
     Dosage: 5 MG;SL 10 MG 15 MG
     Route: 060
     Dates: start: 20110715, end: 20110811
  3. SAPHRIS [Suspect]
     Indication: SCHIZOAFFECTIVE DISORDER
     Dosage: 5 MG;SL 10 MG 15 MG
     Route: 060
     Dates: start: 20110826

REACTIONS (3)
  - DYSTONIA [None]
  - OFF LABEL USE [None]
  - PHARYNGEAL OEDEMA [None]
